FAERS Safety Report 20210231 (Version 5)
Quarter: 2022Q1

REPORT INFORMATION
  Report Type: Report from Study
  Country: CA (occurrence: CA)
  Receive Date: 20211221
  Receipt Date: 20220206
  Transmission Date: 20220424
  Serious: Yes (Death, Hospitalization)
  Sender: FDA-Public Use
  Company Number: CA-ABBVIE-21K-028-4203766-00

PATIENT
  Sex: Female

DRUGS (2)
  1. SKYRIZI [Suspect]
     Active Substance: RISANKIZUMAB-RZAA
     Indication: Psoriasis
     Route: 058
     Dates: start: 20200515
  2. SKYRIZI [Suspect]
     Active Substance: RISANKIZUMAB-RZAA
     Dosage: WEEK 0, 4, AND ONCE EVERY 12 WEEKS THEREAFTER
     Route: 058
     Dates: start: 20210903

REACTIONS (4)
  - Cardiac disorder [Fatal]
  - Pulmonary oedema [Fatal]
  - Dyspnoea [Fatal]
  - Gait disturbance [Unknown]

NARRATIVE: CASE EVENT DATE: 20210101
